FAERS Safety Report 4556111-3 (Version None)
Quarter: 2005Q1

REPORT INFORMATION
  Report Type: 
  Country: None (occurrence: None)
  Receive Date: 20050114
  Receipt Date: 20050106
  Transmission Date: 20050727
  Serious: Yes (Hospitalization, Other)
  Sender: FDA-Public Use
  Company Number: 2005006339

PATIENT
  Age: 77 Year
  Sex: Male

DRUGS (2)
  1. UNASYN [Suspect]
     Indication: PNEUMONIA
     Dosage: 3 GRAM, INTRAVENOUS
     Route: 042
     Dates: start: 20041222, end: 20041226
  2. MINOCYCLINE HYDROCHLORIDE [Suspect]
     Indication: PNEUMONIA
     Dosage: 200 MG,
     Dates: start: 20041222, end: 20041226

REACTIONS (3)
  - ATRIAL FIBRILLATION [None]
  - CONDITION AGGRAVATED [None]
  - INTERSTITIAL LUNG DISEASE [None]
